FAERS Safety Report 6690072-6 (Version None)
Quarter: 2010Q2

REPORT INFORMATION
  Report Type: 
  Country: None (occurrence: None)
  Receive Date: 20100421
  Receipt Date: 20100408
  Transmission Date: 20101027
  Serious: Yes (Hospitalization)
  Sender: FDA-Public Use
  Company Number: ES-ELI_LILLY_AND_COMPANY-ES201004002580

PATIENT
  Sex: Female
  Weight: 68 kg

DRUGS (4)
  1. FORTEO [Suspect]
     Indication: OSTEOPOROSIS
     Dosage: 20 UG, DAILY (1/D)
     Route: 058
     Dates: start: 20091027
  2. CYMBALTA [Concomitant]
     Indication: DEPRESSION
     Dosage: 1 D/F, DAILY (1/D)
     Route: 048
  3. CLORAZEPATE DIPOTASSIUM [Concomitant]
     Indication: SLEEP DISORDER
     Dosage: 1 D/F, DAILY (1/D)
     Route: 048
  4. PARACETAMOL [Concomitant]
     Indication: ANALGESIC THERAPY
     Dosage: 1 D/F, AS NEEDED
     Route: 048

REACTIONS (6)
  - ABNORMAL FAECES [None]
  - MOBILITY DECREASED [None]
  - MUSCLE DISORDER [None]
  - PAIN IN EXTREMITY [None]
  - URINE ANALYSIS ABNORMAL [None]
  - WEIGHT DECREASED [None]
